FAERS Safety Report 9102555 (Version 1)
Quarter: 2013Q1

REPORT INFORMATION
  Report Type: Spontaneous
  Country: IT (occurrence: IT)
  Receive Date: 20130219
  Receipt Date: 20130219
  Transmission Date: 20140127
  Serious: Yes (Other)
  Sender: FDA-Public Use
  Company Number: IT-BAXTER-2013BAX006012

PATIENT
  Age: 42 Year
  Sex: Female

DRUGS (2)
  1. KIOVIG [Suspect]
     Indication: IMMUNODEFICIENCY COMMON VARIABLE
     Dosage: .4 G/KG
     Route: 042
  2. L-THYROXINE [Concomitant]
     Indication: THYROID DISORDER

REACTIONS (8)
  - Abortion spontaneous [Recovered/Resolved]
  - Adverse drug reaction [Recovered/Resolved]
  - Maternal exposure before pregnancy [Recovered/Resolved]
  - Exposure during pregnancy [Recovered/Resolved]
  - Vomiting [None]
  - Dizziness [None]
  - Musculoskeletal stiffness [None]
  - Refusal of treatment by patient [None]
